FAERS Safety Report 8049974-0 (Version None)
Quarter: 2012Q1

REPORT INFORMATION
  Report Type: 
  Country: None (occurrence: None)
  Receive Date: 20120117
  Receipt Date: 20120109
  Transmission Date: 20120608
  Serious: Yes (Congenital Anomaly, Other)
  Sender: FDA-Public Use
  Company Number: US-PFIZER INC-2011268378

PATIENT
  Sex: Female
  Weight: 2.585 kg

DRUGS (6)
  1. ERYTHROMYCIN [Concomitant]
     Dosage: 500 MG, UNK
     Route: 064
  2. MIDRIN [Concomitant]
     Route: 064
  3. DAYPRO [Concomitant]
     Dosage: 600 MG, UNK
     Route: 064
  4. ZOLOFT [Suspect]
     Indication: DEPRESSION
     Dosage: 50 MG, 1X/DAY
     Route: 064
     Dates: start: 20011210
  5. ALDARA [Concomitant]
     Route: 064
  6. ZITHROMAX [Concomitant]
     Dosage: 250 MG, UNK
     Route: 064

REACTIONS (2)
  - MATERNAL EXPOSURE TIMING UNSPECIFIED [None]
  - JAUNDICE NEONATAL [None]
